FAERS Safety Report 9086018 (Version 1)
Quarter: 2013Q1

REPORT INFORMATION
  Report Type: Report from Study
  Country: US (occurrence: US)
  Receive Date: 20130131
  Receipt Date: 20130131
  Transmission Date: 20140127
  Serious: No
  Sender: FDA-Public Use
  Company Number: US-ABBOTT-12P-163-0997375-00

PATIENT
  Age: 31 Year
  Sex: Female

DRUGS (7)
  1. LEXAPRO [Concomitant]
     Indication: DEPRESSION
  2. NUVARING [Concomitant]
     Indication: CONTRACEPTION
     Dosage: WEEKLY
     Route: 067
  3. HUMIRA [Suspect]
     Indication: PSORIATIC ARTHROPATHY
     Dates: start: 200312
  4. HUMIRA [Suspect]
     Indication: PSORIASIS
  5. MOBIC [Concomitant]
     Indication: ARTHRITIS
     Dosage: DAILY
     Route: 048
  6. FLEXERIL [Concomitant]
     Indication: ARTHRITIS
     Dosage: DAILY
     Route: 048
  7. LEXAPRO [Concomitant]
     Indication: ANXIETY
     Dosage: DAILY
     Route: 048

REACTIONS (1)
  - Nervousness [Not Recovered/Not Resolved]
